FAERS Safety Report 18196571 (Version 1)
Quarter: 2020Q3

REPORT INFORMATION
  Report Type: Spontaneous
  Country: FR (occurrence: FR)
  Receive Date: 20200825
  Receipt Date: 20200825
  Transmission Date: 20201103
  Serious: Yes (Hospitalization)
  Sender: FDA-Public Use
  Company Number: FR-SAMSUNG BIOEPIS-SB-2020-26754

PATIENT
  Age: 16 Year
  Sex: Male
  Weight: 43 kg

DRUGS (1)
  1. FLIXABI [Suspect]
     Active Substance: INFLIXIMAB
     Indication: INFANTILE SEPTIC GRANULOMATOSIS
     Route: 042
     Dates: start: 20190910, end: 20190910

REACTIONS (2)
  - Anaphylactic reaction [Recovered/Resolved]
  - Product use in unapproved indication [Unknown]

NARRATIVE: CASE EVENT DATE: 20190910
